FAERS Safety Report 6473549-8 (Version None)
Quarter: 2009Q4

REPORT INFORMATION
  Report Type: 
  Country: None (occurrence: None)
  Receive Date: 20091125
  Receipt Date: 20091110
  Transmission Date: 20100525
  Serious: Yes (Hospitalization)
  Sender: FDA-Public Use
  Company Number: WAES 0904USA00560

PATIENT
  Age: 51 Year
  Sex: Male

DRUGS (5)
  1. PRINIVIL [Suspect]
     Indication: HYPERTENSION
     Dosage: /PO
     Route: 048
  2. PLACEBO (UNSPECIFIED) UNK [Suspect]
  3. ABILIFY [Suspect]
     Indication: SCHIZOPHRENIA
     Dosage: 400 MG/IM
     Route: 030
     Dates: start: 20090129, end: 20090224
  4. ABILIFY [Concomitant]
  5. HYDROCHLOROTHIAZIDE [Concomitant]

REACTIONS (20)
  - ALCOHOL USE [None]
  - ASPARTATE AMINOTRANSFERASE INCREASED [None]
  - BLOOD CREATININE INCREASED [None]
  - BLOOD GLUCOSE INCREASED [None]
  - BLUNTED AFFECT [None]
  - DISTURBANCE IN ATTENTION [None]
  - DYSARTHRIA [None]
  - HALLUCINATION, AUDITORY [None]
  - IRRITABILITY [None]
  - JUDGEMENT IMPAIRED [None]
  - MEMORY IMPAIRMENT [None]
  - MOOD ALTERED [None]
  - MULTIPLE DRUG OVERDOSE [None]
  - OVERDOSE [None]
  - PARANOIA [None]
  - REFUSAL OF TREATMENT BY PATIENT [None]
  - SELF-MEDICATION [None]
  - SPEECH DISORDER [None]
  - SUICIDAL IDEATION [None]
  - TREATMENT NONCOMPLIANCE [None]
